FAERS Safety Report 17638531 (Version 2)
Quarter: 2020Q2

REPORT INFORMATION
  Report Type: Spontaneous
  Country: US (occurrence: US)
  Receive Date: 20200407
  Receipt Date: 20200415
  Transmission Date: 20200713
  Serious: Yes (Hospitalization)
  Sender: FDA-Public Use
  Company Number: US-TEVA-2020-US-1218212

PATIENT
  Age: 22 Year
  Sex: Male

DRUGS (3)
  1. PREDNISONE. [Suspect]
     Active Substance: PREDNISONE
     Indication: PAPILLOEDEMA
     Route: 048
  2. PREDNISONE. [Suspect]
     Active Substance: PREDNISONE
     Indication: MACULAR OEDEMA
  3. AZITHROMYCIN ANHYDROUS. [Concomitant]
     Active Substance: AZITHROMYCIN ANHYDROUS
     Route: 065

REACTIONS (7)
  - Vitritis [Recovering/Resolving]
  - Optic disc haemorrhage [Recovering/Resolving]
  - Retinal vasculitis [Recovering/Resolving]
  - Blindness unilateral [Recovering/Resolving]
  - Eye infection syphilitic [Recovering/Resolving]
  - Retinal artery occlusion [Recovering/Resolving]
  - Optic neuritis [Recovering/Resolving]
